FAERS Safety Report 22324973 (Version 1)
Quarter: 2023Q2

REPORT INFORMATION
  Report Type: Spontaneous
  Country: US (occurrence: None)
  Receive Date: 20230514
  Receipt Date: 20230514
  Transmission Date: 20230722
  Serious: No
  Sender: FDA-Public Use
  Company Number: None

PATIENT
  Age: 20 Year
  Weight: 78.75 kg

DRUGS (8)
  1. LACTULOSE [Suspect]
     Active Substance: LACTULOSE
     Indication: Constipation
     Dosage: OTHER QUANTITY : 2700 ML;?FREQUENCY : 3 TIMES A DAY;?
     Route: 048
     Dates: start: 20220929, end: 20221012
  2. PERCOCET [Concomitant]
     Active Substance: ACETAMINOPHEN\OXYCODONE HYDROCHLORIDE
  3. FLEXERIL [Concomitant]
     Active Substance: CYCLOBENZAPRINE HYDROCHLORIDE
  4. GABAPENTIN [Concomitant]
     Active Substance: GABAPENTIN
  5. ALBUTEROL [Concomitant]
     Active Substance: ALBUTEROL
  6. IBUPROFEN [Concomitant]
     Active Substance: IBUPROFEN
  7. VITAMINS [Concomitant]
     Active Substance: VITAMINS
  8. DOCUSATE SODIUM [Concomitant]
     Active Substance: DOCUSATE SODIUM

REACTIONS (5)
  - Nausea [None]
  - Diarrhoea [None]
  - Abdominal pain [None]
  - Drug ineffective [None]
  - Recalled product administered [None]

NARRATIVE: CASE EVENT DATE: 20220930
